FAERS Safety Report 21923441 (Version 4)
Quarter: 2023Q2

REPORT INFORMATION
  Report Type: Report from Study
  Country: US (occurrence: US)
  Receive Date: 20230130
  Receipt Date: 20230630
  Transmission Date: 20230721
  Serious: Yes (Hospitalization)
  Sender: FDA-Public Use
  Company Number: US-ABBVIE-4285616

PATIENT
  Age: 79 Year
  Sex: Male
  Weight: 86.182 kg

DRUGS (2)
  1. IMBRUVICA [Suspect]
     Active Substance: IBRUTINIB
     Indication: Product used for unknown indication
     Dosage: FORM STRENGTH: 420 MG
     Route: 048
     Dates: start: 20230121
  2. IMBRUVICA [Suspect]
     Active Substance: IBRUTINIB
     Indication: Product used for unknown indication
     Dosage: FORM STRENGTH: 420 MG
     Route: 048
     Dates: start: 20161006, end: 20221220

REACTIONS (9)
  - Concussion [Unknown]
  - Asthenia [Unknown]
  - Cerebral haemorrhage [Unknown]
  - Headache [Recovered/Resolved]
  - Head injury [Unknown]
  - Balance disorder [Recovered/Resolved]
  - Haemorrhage [Unknown]
  - Blood viscosity decreased [Unknown]
  - Dizziness [Recovered/Resolved]

NARRATIVE: CASE EVENT DATE: 20221204
